FAERS Safety Report 21207956 (Version 4)
Quarter: 2023Q1

REPORT INFORMATION
  Report Type: Spontaneous
  Country: US (occurrence: US)
  Receive Date: 20220812
  Receipt Date: 20230116
  Transmission Date: 20230418
  Serious: Yes (Other)
  Sender: FDA-Public Use
  Company Number: US-PFIZER INC-PV202200041204

PATIENT
  Age: 65 Year
  Sex: Female

DRUGS (4)
  1. ZIRABEV [Suspect]
     Active Substance: BEVACIZUMAB-BVZR
     Dosage: 600 MG, EVERY 3 WEEKS
     Route: 042
  2. CARBOPLATIN [Suspect]
     Active Substance: CARBOPLATIN
     Dosage: UNK, EVERY 3 WEEKS
  3. PACLITAXEL [Suspect]
     Active Substance: PACLITAXEL
     Dosage: UNK, EVERY 3 WEEKS
  4. TAXOL [Suspect]
     Active Substance: PACLITAXEL
     Dosage: UNK

REACTIONS (21)
  - Haemorrhage [Unknown]
  - Weight decreased [Unknown]
  - Decreased appetite [Unknown]
  - Abdominal pain [Unknown]
  - Abdominal mass [Unknown]
  - Adnexa uteri mass [Unknown]
  - Pollakiuria [Unknown]
  - Gait disturbance [Unknown]
  - Pyrexia [Unknown]
  - Chills [Unknown]
  - Night sweats [Unknown]
  - Infection [Unknown]
  - Skin disorder [Unknown]
  - Dizziness [Unknown]
  - Headache [Unknown]
  - Dyspnoea [Unknown]
  - Cough [Unknown]
  - Stomatitis [Unknown]
  - Mucosal inflammation [Unknown]
  - Vomiting [Unknown]
  - Diarrhoea [Unknown]

NARRATIVE: CASE EVENT DATE: 20220809
